FAERS Safety Report 18252251 (Version 1)
Quarter: 2020Q3

REPORT INFORMATION
  Report Type: Spontaneous
  Country: US (occurrence: US)
  Receive Date: 20200910
  Receipt Date: 20200910
  Transmission Date: 20201103
  Serious: No
  Sender: FDA-Public Use
  Company Number: US-FARMAPROD-202005-0753

PATIENT
  Sex: Female

DRUGS (16)
  1. REWETTING [Concomitant]
  2. OXERVATE [Suspect]
     Active Substance: CENEGERMIN-BKBJ
     Indication: NEUROTROPHIC KERATOPATHY
     Route: 047
     Dates: start: 20200522
  3. B12 ACTIVE [Concomitant]
  4. VITAMIN D3 [Concomitant]
     Active Substance: CHOLECALCIFEROL
  5. CLARITIN [Concomitant]
     Active Substance: LORATADINE
  6. COMBIGAN [Concomitant]
     Active Substance: BRIMONIDINE TARTRATE\TIMOLOL MALEATE
     Dosage: 0.2%?0.5%
  7. DULOXETINE HCL [Concomitant]
     Active Substance: DULOXETINE HYDROCHLORIDE
  8. RESTASIS [Concomitant]
     Active Substance: CYCLOSPORINE
     Dosage: DROPERETTE
  9. LISINOPRIL. [Concomitant]
     Active Substance: LISINOPRIL
  10. LEVOTHYROXINE SODIUM. [Concomitant]
     Active Substance: LEVOTHYROXINE SODIUM
  11. PREDNISONE. [Concomitant]
     Active Substance: PREDNISONE
  12. ASPIRINE [Concomitant]
     Active Substance: ASPIRIN
  13. MYRBETRIQ [Concomitant]
     Active Substance: MIRABEGRON
  14. JANUVIA [Concomitant]
     Active Substance: SITAGLIPTIN PHOSPHATE
  15. ROSUVASTATIN CALCIUM. [Concomitant]
     Active Substance: ROSUVASTATIN CALCIUM
  16. BYSTOLIC [Concomitant]
     Active Substance: NEBIVOLOL HYDROCHLORIDE

REACTIONS (4)
  - Eye irritation [Unknown]
  - Foreign body sensation in eyes [Unknown]
  - Product dose omission issue [Unknown]
  - Drug ineffective [Unknown]
